FAERS Safety Report 10266591 (Version 2)
Quarter: 2015Q1

REPORT INFORMATION
  Report Type: Spontaneous
  Country: GB (occurrence: GB)
  Receive Date: 20140629
  Receipt Date: 20150302
  Transmission Date: 20150720
  Serious: Yes (Death, Hospitalization, Other)
  Sender: FDA-Public Use
  Company Number: PHFR2014GB004523

PATIENT
  Age: 53 Year
  Sex: Male
  Weight: 72.6 kg

DRUGS (1)
  1. CLOZARIL [Suspect]
     Active Substance: CLOZAPINE
     Indication: SCHIZOPHRENIA
     Dosage: UNK
     Route: 048
     Dates: start: 20070611

REACTIONS (4)
  - Bronchopneumonia [Unknown]
  - Infective exacerbation of chronic obstructive airways disease [Recovering/Resolving]
  - Syncope [Unknown]
  - Coronary artery occlusion [Fatal]

NARRATIVE: CASE EVENT DATE: 20140424
